FAERS Safety Report 6161542-4 (Version None)
Quarter: 2009Q2

REPORT INFORMATION
  Report Type: 
  Country: None (occurrence: None)
  Receive Date: 20090417
  Receipt Date: 20090417
  Transmission Date: 20091009
  Serious: No
  Sender: FDA-Public Use
  Company Number: None

PATIENT
  Age: 48 Year
  Sex: Male
  Weight: 74.3899 kg

DRUGS (1)
  1. GLYBURIDE AND METFORMIN HCL [Suspect]
     Dosage: ONE TAB TWICE A DAY PO
     Route: 048
     Dates: start: 20070101, end: 20090315

REACTIONS (4)
  - DIABETES MELLITUS INADEQUATE CONTROL [None]
  - DRUG EFFECT DECREASED [None]
  - GLYCOSYLATED HAEMOGLOBIN INCREASED [None]
  - PRODUCT SUBSTITUTION ISSUE [None]
